FAERS Safety Report 6571672-0 (Version None)
Quarter: 2010Q1

REPORT INFORMATION
  Report Type: 
  Country: None (occurrence: None)
  Receive Date: 20100205
  Receipt Date: 20100201
  Transmission Date: 20100710
  Serious: Yes (Death, Hospitalization, Other)
  Sender: FDA-Public Use
  Company Number: PHHY2010BR05420

PATIENT
  Sex: Male

DRUGS (3)
  1. EXELON [Suspect]
     Indication: DEMENTIA ALZHEIMER'S TYPE
     Dosage: 9MG/5CM2, 1 PATCH PER DAY
  2. CARVEDILOL [Concomitant]
  3. HALDOL [Concomitant]

REACTIONS (9)
  - AGGRESSION [None]
  - CARDIO-RESPIRATORY ARREST [None]
  - DYSARTHRIA [None]
  - DYSPHAGIA [None]
  - GENERAL PHYSICAL HEALTH DETERIORATION [None]
  - HYPOKINESIA [None]
  - MOOD SWINGS [None]
  - RESPIRATORY TRACT INFECTION [None]
  - THORACIC CAVITY DRAINAGE [None]
